FAERS Safety Report 8523495-0 (Version None)
Quarter: 2012Q3

REPORT INFORMATION
  Report Type: 
  Country: None (occurrence: None)
  Receive Date: 20120720
  Receipt Date: 20120710
  Transmission Date: 20120928
  Serious: Yes (Other)
  Sender: FDA-Public Use
  Company Number: US-JNJFOC-20120705238

PATIENT

DRUGS (1)
  1. RISPERIDONE [Suspect]
     Indication: ANOREXIA NERVOSA
     Route: 048

REACTIONS (5)
  - DIZZINESS [None]
  - DEPRESSION [None]
  - FATIGUE [None]
  - SUICIDAL IDEATION [None]
  - BLOOD PROLACTIN INCREASED [None]
